FAERS Safety Report 10268821 (Version 2)
Quarter: 2014Q3

REPORT INFORMATION
  Report Type: Spontaneous
  Country: US (occurrence: US)
  Receive Date: 20140630
  Receipt Date: 20140731
  Transmission Date: 20150326
  Serious: Yes (Death, Hospitalization, Disabling)
  Sender: FDA-Public Use
  Company Number: US-GLAXOSMITHKLINE-A1078828A

PATIENT
  Age: 57 Year
  Sex: Female
  Weight: 147.7 kg

DRUGS (18)
  1. VOTRIENT [Suspect]
     Active Substance: PAZOPANIB HYDROCHLORIDE
     Indication: RENAL CANCER
     Dosage: 400MG PER DAY
     Route: 048
     Dates: start: 20140318, end: 20140409
  2. ATARAX [Concomitant]
     Active Substance: HYDROXYZINE\HYDROXYZINE HYDROCHLORIDE
  3. DILAUDID [Concomitant]
     Active Substance: HYDROMORPHONE HYDROCHLORIDE
  4. ADVAIR HFA [Concomitant]
     Active Substance: FLUTICASONE PROPIONATE\SALMETEROL XINAFOATE
  5. DAKINS SOLUTION [Concomitant]
  6. ATROPINE [Concomitant]
     Active Substance: ATROPINE
  7. NYSTATIN. [Concomitant]
     Active Substance: NYSTATIN
  8. PROAIR HFA [Concomitant]
     Active Substance: ALBUTEROL SULFATE
  9. SODIUM CHLORIDE. [Concomitant]
     Active Substance: SODIUM CHLORIDE
  10. KYTRIL [Concomitant]
     Active Substance: GRANISETRON HYDROCHLORIDE
  11. NASONEX [Concomitant]
     Active Substance: MOMETASONE FUROATE
  12. VENTOLIN [Concomitant]
     Active Substance: ALBUTEROL SULFATE
  13. MORPHINE [Concomitant]
     Active Substance: MORPHINE
  14. LORAZEPAM. [Concomitant]
     Active Substance: LORAZEPAM
  15. NEURONTIN [Concomitant]
     Active Substance: GABAPENTIN
  16. LUMIGAN [Concomitant]
     Active Substance: BIMATOPROST
  17. HYDROMORPHONE [Concomitant]
     Active Substance: HYDROMORPHONE
  18. NYSTATIN POWDER [Concomitant]

REACTIONS (15)
  - Decreased appetite [Unknown]
  - Hyperkalaemia [Unknown]
  - Abdominal pain [Unknown]
  - Fluid retention [Not Recovered/Not Resolved]
  - Hospice care [Fatal]
  - Dyspnoea exertional [Unknown]
  - Confusional state [Unknown]
  - Azotaemia [Unknown]
  - Renal failure [Fatal]
  - Fatigue [Not Recovered/Not Resolved]
  - Renal failure chronic [Unknown]
  - Asthenia [Not Recovered/Not Resolved]
  - Failure to thrive [Recovering/Resolving]
  - Bacteraemia [Unknown]
  - Dizziness postural [Unknown]

NARRATIVE: CASE EVENT DATE: 201404
